FAERS Safety Report 8419000-X (Version None)
Quarter: 2012Q2

REPORT INFORMATION
  Report Type: 
  Country: None (occurrence: None)
  Receive Date: 20120607
  Receipt Date: 20120604
  Transmission Date: 20120825
  Serious: Yes (Hospitalization)
  Sender: FDA-Public Use
  Company Number: PHEH2012US000496

PATIENT
  Sex: Female
  Weight: 52.7 kg

DRUGS (13)
  1. HYDREA [Concomitant]
  2. FOLIC ACID [Concomitant]
  3. MEGACE [Concomitant]
  4. EXELON [Concomitant]
  5. MELOXICAM [Concomitant]
     Dosage: 15 MG, UNK
  6. LASIX [Concomitant]
  7. ZOLOFT [Concomitant]
  8. PHENERGAN [Concomitant]
  9. VICODIN [Concomitant]
     Dosage: 705 MG, UNK
  10. FLEXERIL [Concomitant]
     Dosage: 10 MG, UNK
     Route: 048
  11. ZESTRIL [Concomitant]
  12. EXJADE [Suspect]
     Indication: SICKLE CELL ANAEMIA
     Dosage: 125 MG, DAILY
     Route: 048
     Dates: start: 20071030
  13. DILANTIN [Concomitant]

REACTIONS (6)
  - HAEMOGLOBIN DECREASED [None]
  - PALLOR [None]
  - SICKLE CELL ANAEMIA WITH CRISIS [None]
  - PNEUMONIA [None]
  - ABDOMINAL PAIN [None]
  - BLOOD BILIRUBIN ABNORMAL [None]
